FAERS Safety Report 4961158-9 (Version None)
Quarter: 2006Q1

REPORT INFORMATION
  Report Type: 
  Country: None (occurrence: None)
  Receive Date: 20060201
  Receipt Date: 20051021
  Transmission Date: 20060701
  Serious: No
  Sender: FDA-Public Use
  Company Number: 2005PV003775

PATIENT
  Age: 59 Year
  Sex: Male
  Weight: 136.0791 kg

DRUGS (3)
  1. BYETTA [Suspect]
     Indication: DIABETES MELLITUS NON-INSULIN-DEPENDENT
     Dosage: 5 MCG;BID;SC   : 10 MCG;BID;SC
     Route: 058
     Dates: start: 20050915, end: 20051016
  2. BYETTA [Suspect]
     Indication: DIABETES MELLITUS NON-INSULIN-DEPENDENT
     Dosage: 5 MCG;BID;SC   : 10 MCG;BID;SC
     Route: 058
     Dates: start: 20051017
  3. AMARYL [Concomitant]

REACTIONS (6)
  - BLOOD GLUCOSE DECREASED [None]
  - DECREASED APPETITE [None]
  - FEELING ABNORMAL [None]
  - FEELING JITTERY [None]
  - STOMACH DISCOMFORT [None]
  - WEIGHT DECREASED [None]
